FAERS Safety Report 8612639 (Version 2)
Quarter: 2012Q4

REPORT INFORMATION
  Report Type: 
  Country: CA (occurrence: CA)
  Receive Date: 20120613
  Receipt Date: 20121130
  Transmission Date: 20130627
  Serious: Yes (Hospitalization, Other)
  Sender: FDA-Public Use
  Company Number: CA-ROCHE-1077740

PATIENT
  Sex: Female

DRUGS (2)
  1. XOLAIR [Suspect]
     Indication: ASTHMA
     Route: 058
     Dates: start: 20070420
  2. XOLAIR [Suspect]
     Route: 058
     Dates: start: 20090330

REACTIONS (1)
  - Mental disorder [Unknown]
